FAERS Safety Report 4967414-2 (Version None)
Quarter: 2006Q2

REPORT INFORMATION
  Report Type: 
  Country: None (occurrence: None)
  Receive Date: 20060404
  Receipt Date: 20060328
  Transmission Date: 20061013
  Serious: Yes (Life-Threatening)
  Sender: FDA-Public Use
  Company Number: 107-20785-06030820

PATIENT
  Age: 48 Year
  Sex: Female

DRUGS (8)
  1. THALIDOMIDE (THALIDOMIDE) [Suspect]
     Indication: MULTIPLE MYELOMA
     Dosage: 200 MG, QD, ORAL
     Route: 048
  2. PEGYLATED INTERFERON (PEG-IFN) (PEGINTERFERON ALFA-2A) [Suspect]
     Indication: MULTIPLE MYELOMA
     Dosage: 1.5 UG/KG/WEEK
  3. GCSF (GRANULOCYTE COLONY STIMULATING FACTOR) [Concomitant]
  4. ERYTHROPOIETIN (ERYTHROPOIETIN) [Concomitant]
  5. VINCRISTINE [Concomitant]
  6. ADRIAMYCIN PFS [Concomitant]
  7. DEXAMETHASONE [Concomitant]
  8. MELPHALAN (MELPHALAN) [Concomitant]

REACTIONS (3)
  - BONE MARROW FAILURE [None]
  - DRUG INTERACTION [None]
  - STEM CELL TRANSPLANT [None]
